FAERS Safety Report 24153026 (Version 1)
Quarter: 2024Q3

REPORT INFORMATION
  Report Type: Spontaneous
  Country: US (occurrence: None)
  Receive Date: 20240730
  Receipt Date: 20240730
  Transmission Date: 20241016
  Serious: Yes (Hospitalization)
  Sender: Public
  Company Number: None

PATIENT
  Age: 56 Year
  Sex: Male

DRUGS (1)
  1. STIVARGA [Suspect]
     Active Substance: REGORAFENIB MONOHYDRATE
     Indication: Rectal cancer
     Route: 048
     Dates: start: 202407

REACTIONS (4)
  - Decreased appetite [None]
  - Asthenia [None]
  - Dehydration [None]
  - Therapy change [None]

NARRATIVE: CASE EVENT DATE: 20240701
